FAERS Safety Report 17052135 (Version 1)
Quarter: 2019Q4

REPORT INFORMATION
  Report Type: Spontaneous
  Country: US (occurrence: US)
  Receive Date: 20191021
  Receipt Date: 20191021
  Transmission Date: 20200122
  Serious: No
  Sender: FDA-Public Use
  Company Number: None

PATIENT
  Age: 72 Year
  Sex: Female

DRUGS (1)
  1. PROLIA [Suspect]
     Active Substance: DENOSUMAB
     Dosage: ?          OTHER FREQUENCY:OTHER;?
     Route: 057
     Dates: start: 201904

REACTIONS (3)
  - Product storage error [None]
  - Product dose omission [None]
  - Manufacturing product shipping issue [None]

NARRATIVE: CASE EVENT DATE: 20190930
